FAERS Safety Report 14423567 (Version 9)
Quarter: 2019Q1

REPORT INFORMATION
  Report Type: Spontaneous
  Country: US (occurrence: US)
  Receive Date: 20180123
  Receipt Date: 20190329
  Transmission Date: 20190417
  Serious: Yes (Other)
  Sender: FDA-Public Use
  Company Number: US-PFIZER INC-2018026203

PATIENT
  Age: 68 Year
  Sex: Male

DRUGS (3)
  1. NICOTROL [Suspect]
     Active Substance: NICOTINE
     Dosage: UNK
     Route: 045
  2. NICOTROL [Suspect]
     Active Substance: NICOTINE
     Dosage: 2 DF, AS NEEDED (1 SPRAY IN 1 NOSTRIL EVERY 15 MINUTES AS NEEDED)
     Route: 045
  3. NICOTROL [Suspect]
     Active Substance: NICOTINE
     Dosage: UNK, AS NEEDED [SPRAY IN EACH NOSTRIL, 30 MIN AS NEEDED]
     Route: 045

REACTIONS (6)
  - Drug effect incomplete [Unknown]
  - Incorrect dosage administered [Unknown]
  - Stress [Unknown]
  - Type 2 diabetes mellitus [Unknown]
  - Product dispensing error [Unknown]
  - Product quality issue [Unknown]
